FAERS Safety Report 20831094 (Version 1)
Quarter: 2022Q2

REPORT INFORMATION
  Report Type: Spontaneous
  Country: US (occurrence: US)
  Receive Date: 20220515
  Receipt Date: 20220515
  Transmission Date: 20220721
  Serious: No
  Sender: FDA-Public Use
  Company Number: US-Blueprint Medicines Corporation-90

PATIENT
  Sex: Female

DRUGS (2)
  1. AYVAKIT [Suspect]
     Active Substance: AVAPRITINIB
     Indication: Malignant mast cell neoplasm
     Route: 048
     Dates: start: 20211007
  2. AYVAKIT [Suspect]
     Active Substance: AVAPRITINIB
     Indication: Systemic mastocytosis

REACTIONS (7)
  - Balance disorder [Recovering/Resolving]
  - Haemoglobin abnormal [Recovering/Resolving]
  - Laboratory test abnormal [Recovering/Resolving]
  - Hair colour changes [Unknown]
  - Alopecia [Unknown]
  - Dizziness [Recovering/Resolving]
  - Confusional state [Unknown]
